FAERS Safety Report 12695864 (Version 1)
Quarter: 2016Q3

REPORT INFORMATION
  Report Type: Report from Study
  Country: CA (occurrence: CA)
  Receive Date: 20160829
  Receipt Date: 20160829
  Transmission Date: 20161109
  Serious: Yes (Other)
  Sender: FDA-Public Use
  Company Number: CA-HLSUS-2016-CA-000338

PATIENT
  Age: 40 Year
  Sex: Male
  Weight: 210 kg

DRUGS (1)
  1. CLOZARIL [Suspect]
     Active Substance: CLOZAPINE
     Route: 048
     Dates: start: 20080912

REACTIONS (2)
  - White blood cell count decreased [Unknown]
  - Lymphoma [Unknown]

NARRATIVE: CASE EVENT DATE: 20151118
